FAERS Safety Report 9442010 (Version 1)
Quarter: 2013Q3

REPORT INFORMATION
  Report Type: Spontaneous
  Country: US (occurrence: US)
  Receive Date: 20130806
  Receipt Date: 20130806
  Transmission Date: 20140515
  Serious: Yes (Other)
  Sender: FDA-Public Use
  Company Number: US-ELI_LILLY_AND_COMPANY-US201307009473

PATIENT
  Sex: Female

DRUGS (12)
  1. HUMULIN NPH [Suspect]
     Indication: TYPE 2 DIABETES MELLITUS
     Dosage: 25 U, BID
     Dates: start: 200502
  2. HUMALOG LISPRO [Suspect]
     Indication: TYPE 2 DIABETES MELLITUS
     Dosage: 6 U, EACH EVENING
  3. METFORMIN [Concomitant]
  4. SIMVASTATIN [Concomitant]
  5. PRILOSEC [Concomitant]
  6. RANITIDINE [Concomitant]
  7. AMLODIPINE [Concomitant]
  8. BABY ASPIRIN [Concomitant]
  9. SINGULAR [Concomitant]
  10. PROAIR [Concomitant]
  11. ALBUTEROL W/IPRATROPIUM [Concomitant]
  12. BUDESONIDE [Concomitant]

REACTIONS (2)
  - Myocardial infarction [Unknown]
  - Cerebrovascular accident [Unknown]
